FAERS Safety Report 7256706-2 (Version None)
Quarter: 2011Q1

REPORT INFORMATION
  Report Type: 
  Country: None (occurrence: None)
  Receive Date: 20110129
  Receipt Date: 20100712
  Transmission Date: 20110831
  Serious: No
  Sender: FDA-Public Use
  Company Number: US-ABBOTT-10P-163-0656733-00

PATIENT
  Age: 58 Year
  Sex: Male

DRUGS (8)
  1. PREDNISONE [Concomitant]
     Indication: RHEUMATOID ARTHRITIS
  2. HUMIRA [Suspect]
     Indication: RHEUMATOID ARTHRITIS
     Dates: start: 20070101
  3. SERTRALINE HYDROCHLORIDE [Concomitant]
     Indication: DEPRESSION
  4. METHOCARBAMOL [Concomitant]
     Indication: MUSCLE RELAXANT THERAPY
  5. TEMAZEPAM [Concomitant]
     Indication: INSOMNIA
  6. FOLIC ACID [Concomitant]
     Indication: GASTRIC DISORDER
  7. VENAZEPRIL [Concomitant]
     Indication: BLOOD PRESSURE
  8. MTX [Concomitant]
     Indication: RHEUMATOID ARTHRITIS
     Dosage: IN HIS ARM ONCE A WEEK
     Route: 050

REACTIONS (2)
  - NASOPHARYNGITIS [None]
  - INCREASED UPPER AIRWAY SECRETION [None]
